FAERS Safety Report 20983963 (Version 3)
Quarter: 2022Q3

REPORT INFORMATION
  Report Type: Report from Study
  Country: ZA (occurrence: ZA)
  Receive Date: 20220621
  Receipt Date: 20220801
  Transmission Date: 20221027
  Serious: Yes (Hospitalization, Other)
  Sender: FDA-Public Use
  Company Number: ZA-NOVARTISPH-NVSC2022ZA132107

PATIENT
  Age: 19 Year
  Sex: Female

DRUGS (2)
  1. COSENTYX [Suspect]
     Active Substance: SECUKINUMAB
     Indication: Psoriatic arthropathy
     Dosage: 150 MG, QW
     Route: 058
     Dates: start: 20220602
  2. VALPROATE SODIUM [Suspect]
     Active Substance: VALPROATE SODIUM
     Indication: Product used for unknown indication
     Dosage: UNK
     Route: 065

REACTIONS (13)
  - Meningitis viral [Recovering/Resolving]
  - Seizure [Unknown]
  - Gastrointestinal fungal infection [Unknown]
  - Pyrexia [Unknown]
  - Nausea [Unknown]
  - Burning sensation [Unknown]
  - Headache [Unknown]
  - Neck pain [Unknown]
  - Dizziness [Unknown]
  - Condition aggravated [Unknown]
  - Influenza [Recovering/Resolving]
  - Fatigue [Unknown]
  - Tremor [Unknown]

NARRATIVE: CASE EVENT DATE: 20220607
